FAERS Safety Report 7300941-1 (Version None)
Quarter: 2010Q4

REPORT INFORMATION
  Report Type: 
  Country: None (occurrence: None)
  Receive Date: 20101230
  Receipt Date: 20100202
  Transmission Date: 20110411
  Serious: Yes (Other)
  Sender: FDA-Public Use
  Company Number: 20100036

PATIENT
  Age: 52 Year
  Sex: Female

DRUGS (1)
  1. VENOFER [Suspect]
     Indication: RENAL FAILURE CHRONIC
     Dosage: 1 GRAM SINGLE DOSE IV
     Route: 042
     Dates: start: 20091208, end: 20091208

REACTIONS (1)
  - MUSCLE SPASMS [None]
